FAERS Safety Report 9927427 (Version 2)
Quarter: 2014Q1

REPORT INFORMATION
  Report Type: Spontaneous
  Country: IT (occurrence: IT)
  Receive Date: 20140226
  Receipt Date: 20140301
  Transmission Date: 20141002
  Serious: Yes (Other)
  Sender: FDA-Public Use
  Company Number: IT-ROCHE-1352056

PATIENT
  Age: 66 Year
  Sex: Male

DRUGS (6)
  1. CELLCEPT [Suspect]
     Indication: LIVER TRANSPLANT
     Route: 048
     Dates: start: 20130520, end: 20131225
  2. LANSOPRAZOLE [Concomitant]
  3. PROGRAF [Concomitant]
  4. DEURSIL [Concomitant]
  5. CARDIOASPIRIN [Concomitant]
  6. VIREAD [Concomitant]

REACTIONS (3)
  - Agranulocytosis [Recovered/Resolved]
  - Pyrexia [Recovered/Resolved]
  - Skin irritation [Recovered/Resolved]
